FAERS Safety Report 18612507 (Version 1)
Quarter: 2020Q4

REPORT INFORMATION
  Report Type: Report from Study
  Country: CO (occurrence: CO)
  Receive Date: 20201214
  Receipt Date: 20201214
  Transmission Date: 20210114
  Serious: Yes (Hospitalization)
  Sender: FDA-Public Use
  Company Number: CO-BAYER-2020-206513

PATIENT
  Age: 50 Year
  Sex: Female

DRUGS (2)
  1. ADEMPAS [Suspect]
     Active Substance: RIOCIGUAT
     Indication: PULMONARY ARTERIAL HYPERTENSION
     Dosage: 2.5 MG, Q8HR
     Route: 048
     Dates: start: 20200203, end: 20201006
  2. ADEMPAS [Suspect]
     Active Substance: RIOCIGUAT
     Indication: PULMONARY ARTERIAL HYPERTENSION
     Dosage: 2.5 MG, Q8HR
     Route: 048
     Dates: start: 20201017

REACTIONS (5)
  - Chest pain [Not Recovered/Not Resolved]
  - Fatigue [Recovering/Resolving]
  - Hospitalisation [None]
  - Incorrect product administration duration [None]
  - Drug dose titration not performed [None]

NARRATIVE: CASE EVENT DATE: 20200919
